FAERS Safety Report 12570404 (Version 8)
Quarter: 2016Q4

REPORT INFORMATION
  Report Type: Spontaneous
  Country: GB (occurrence: GB)
  Receive Date: 20160719
  Receipt Date: 20161004
  Transmission Date: 20170207
  Serious: Yes (Other)
  Sender: FDA-Public Use
  Company Number: GB-PFIZER INC-2016333872

PATIENT
  Age: 69 Year
  Sex: Female

DRUGS (10)
  1. NEULASTA [Suspect]
     Active Substance: PEGFILGRASTIM
     Indication: BREAST CANCER
     Dosage: 6 MG, CYCLE 1/6 (BY A PAXMAN SCALP COOLER)
     Route: 058
     Dates: start: 20160608
  2. DEXAMETHASONE SODIUM PHOSPHATE. [Suspect]
     Active Substance: DEXAMETHASONE SODIUM PHOSPHATE
     Dosage: 8 MG, 1X/DAY
     Route: 042
  3. CYCLOPHOSPHAMIDE MONOHYDRATE [Suspect]
     Active Substance: CYCLOPHOSPHAMIDE
     Indication: BREAST CANCER
     Dosage: 0.9 MG, CYCLE 1/6 (BY A PAXMAN SCALP COOLER)
     Route: 042
     Dates: start: 20160608
  4. EMEND [Suspect]
     Active Substance: APREPITANT
     Dosage: 125 MG, 1X/DAY
     Route: 048
  5. EPIRUBICIN HCL [Suspect]
     Active Substance: EPIRUBICIN HYDROCHLORIDE
     Dosage: UNK
  6. FLUOROURACIL. [Suspect]
     Active Substance: FLUOROURACIL
     Indication: BREAST CANCER
     Dosage: 1008 MG, CYCLIC (BY A PAXMAN SCALP COOLER, REDUCED DOSE)
     Route: 042
     Dates: start: 20160608
  7. METOCLOPRAMIDE. [Suspect]
     Active Substance: METOCLOPRAMIDE
     Dosage: UNK, CYCLIC
  8. EPIRUBICIN HCL [Suspect]
     Active Substance: EPIRUBICIN HYDROCHLORIDE
     Indication: BREAST CANCER
     Dosage: 126 MG, CYCLE 1/6 (BY A PAXMAN SCALP COOLER, REDUCED DOSE)
     Route: 042
     Dates: start: 20160608
  9. EMEND [Suspect]
     Active Substance: APREPITANT
     Dosage: UNK
  10. ONDANSETRON [Suspect]
     Active Substance: ONDANSETRON
     Dosage: 8 MG, CYCLIC
     Route: 042

REACTIONS (23)
  - Alopecia [Unknown]
  - Headache [Unknown]
  - Cough [Unknown]
  - Body temperature abnormal [Unknown]
  - Productive cough [Unknown]
  - Lethargy [Unknown]
  - Diarrhoea [Unknown]
  - Glossodynia [Unknown]
  - Fatigue [Unknown]
  - Hypophagia [Unknown]
  - Lower respiratory tract infection [Unknown]
  - Dyspnoea [Unknown]
  - Odynophagia [Unknown]
  - Oral pain [Unknown]
  - Ear pain [Unknown]
  - Oropharyngeal pain [Unknown]
  - Vomiting [Unknown]
  - Nausea [Unknown]
  - Intercepted drug administration error [Unknown]
  - Pharyngeal erythema [Unknown]
  - Feeling abnormal [Unknown]
  - Sputum discoloured [Unknown]
  - Malaise [Unknown]

NARRATIVE: CASE EVENT DATE: 201606
